FAERS Safety Report 12949083 (Version 12)
Quarter: 2017Q2

REPORT INFORMATION
  Report Type: Report from Study
  Country: US (occurrence: US)
  Receive Date: 20161117
  Receipt Date: 20170508
  Transmission Date: 20170830
  Serious: Yes (Hospitalization, Other)
  Sender: FDA-Public Use
  Company Number: US-PFIZER INC-2016508120

PATIENT
  Age: 77 Year
  Sex: Female

DRUGS (18)
  1. VITAMIN D3 [Concomitant]
     Active Substance: CHOLECALCIFEROL
     Dosage: 2000 IU, DAILY
     Route: 048
  2. MAGNESIUM CARBONATE [Concomitant]
     Active Substance: MAGNESIUM CARBONATE
     Dosage: UNK
     Route: 048
  3. IBRANCE [Suspect]
     Active Substance: PALBOCICLIB
     Indication: BREAST CANCER STAGE IV
     Dosage: 125 MG, CYCLIC (TAKE 1 CAP PO QD FOR 21 DAYS)
     Route: 048
  4. IBRANCE [Suspect]
     Active Substance: PALBOCICLIB
     Dosage: 125 MG, DAILY
     Route: 048
     Dates: start: 20161103, end: 20170123
  5. AROMASIN [Concomitant]
     Active Substance: EXEMESTANE
     Dosage: 25 MG, DAILY
     Route: 048
     Dates: start: 20160505
  6. LASIX [Concomitant]
     Active Substance: FUROSEMIDE
     Indication: OEDEMA
     Dosage: 20 MG, AS NEEDED (TAKE 1 TABLET BY MOUTH DAILY)
     Route: 048
     Dates: start: 20161007
  7. ZETIA [Concomitant]
     Active Substance: EZETIMIBE
     Dosage: 10 MG, UNK
     Dates: start: 20151028
  8. IBRANCE [Suspect]
     Active Substance: PALBOCICLIB
     Dosage: 125 MG, DAILY
     Route: 048
     Dates: start: 201611, end: 201704
  9. ASPIRIN (E.C.) [Concomitant]
     Active Substance: ASPIRIN
     Dosage: 81 MG, DAILY
     Route: 048
  10. CALCIUM [Concomitant]
     Active Substance: CALCIUM
     Dosage: 1 DF, DAILY
     Route: 048
     Dates: start: 20120117
  11. DELTASONE [Concomitant]
     Active Substance: PREDNISONE
     Dosage: 50 MG, UNK
     Dates: start: 20160404
  12. IBRANCE [Suspect]
     Active Substance: PALBOCICLIB
     Dosage: 125 MG, CYCLIC (DAILY 21 DAYS ON/7 OFF)
     Route: 048
     Dates: start: 20161102, end: 20170328
  13. FEMARA [Concomitant]
     Active Substance: LETROZOLE
     Dosage: 2.5 MG, DAILY
     Route: 048
     Dates: start: 20161005
  14. ATIVAN [Concomitant]
     Active Substance: LORAZEPAM
     Indication: ANXIETY
     Dosage: 1 MG, AS NEEDED(EVERY 6 HOURS FOR ANXIETY (ANXIETY, NAUSEA,MAY ALSO USE AT HS FOR SLEEP)1/2  TO1 TAB
     Route: 048
  15. ATIVAN [Concomitant]
     Active Substance: LORAZEPAM
     Indication: NAUSEA
  16. ENTRESTO [Concomitant]
     Active Substance: SACUBITRIL\VALSARTAN
     Dosage: 1 DF, 2X/DAY [(SACUBITRIL97MG)/(VALSARTAN 103 MG)]
     Route: 048
     Dates: start: 20160404
  17. TOPROL XL [Concomitant]
     Active Substance: METOPROLOL SUCCINATE
     Dosage: 200 MG, DAILY
     Route: 048
     Dates: start: 20160301
  18. ALDACTONE [Concomitant]
     Active Substance: SPIRONOLACTONE
     Dosage: 25 MG, DAILY
     Route: 048
     Dates: start: 20151207

REACTIONS (16)
  - Fatigue [Not Recovered/Not Resolved]
  - Renal disorder [Unknown]
  - Epistaxis [Unknown]
  - Head injury [Unknown]
  - Urinary tract infection [Unknown]
  - Syncope [Recovered/Resolved]
  - Anaemia [Not Recovered/Not Resolved]
  - Red blood cell count decreased [Unknown]
  - Hypotension [Unknown]
  - Alopecia [Not Recovered/Not Resolved]
  - Neoplasm progression [Unknown]
  - Fall [Unknown]
  - Hyperkalaemia [Recovered/Resolved]
  - Nausea [Unknown]
  - White blood cell count decreased [Unknown]
  - Leukopenia [Not Recovered/Not Resolved]

NARRATIVE: CASE EVENT DATE: 20161130
